FAERS Safety Report 4940074-2 (Version None)
Quarter: 2006Q1

REPORT INFORMATION
  Report Type: 
  Country: None (occurrence: None)
  Receive Date: 20060310
  Receipt Date: 20060110
  Transmission Date: 20060701
  Serious: Yes (Hospitalization, Other)
  Sender: FDA-Public Use
  Company Number: PHNU2006DE00488

PATIENT
  Age: 46 Year
  Sex: Male
  Weight: 75 kg

DRUGS (2)
  1. GLEEVEC [Suspect]
     Indication: EOSINOPHILIC LEUKAEMIA
     Dosage: 100 MG, QD
     Route: 048
     Dates: start: 20051115, end: 20051219
  2. GLEEVEC [Suspect]
     Route: 048
     Dates: start: 20060202

REACTIONS (5)
  - ERYTHEMA [None]
  - INFECTION [None]
  - PRURITUS [None]
  - RASH [None]
  - SWELLING FACE [None]
